FAERS Safety Report 8303481-6 (Version None)
Quarter: 2012Q2

REPORT INFORMATION
  Report Type: 
  Country: None (occurrence: None)
  Receive Date: 20120418
  Receipt Date: 20110329
  Transmission Date: 20120825
  Serious: No
  Sender: FDA-Public Use
  Company Number: AEUSA201100075

PATIENT
  Age: 68 Year
  Sex: Female

DRUGS (8)
  1. PROLASTIN-C [Suspect]
     Indication: ALPHA-1 ANTI-TRYPSIN DEFICIENCY
     Dosage: QW;IV
     Route: 042
     Dates: start: 20101101, end: 20110323
  2. LIPITOR [Concomitant]
  3. PAROXETINE [Concomitant]
  4. TORSEMIDE [Concomitant]
  5. ASPIRIN [Concomitant]
  6. LOSARTAN POTASSIUM [Concomitant]
  7. ATENOLOL [Concomitant]
  8. POTASSIUM CHLORIDE [Concomitant]

REACTIONS (3)
  - RASH ERYTHEMATOUS [None]
  - DRUG DOSE OMISSION [None]
  - RASH PRURITIC [None]
